FAERS Safety Report 6124159-3 (Version None)
Quarter: 2009Q1

REPORT INFORMATION
  Report Type: 
  Country: None (occurrence: None)
  Receive Date: 20090317
  Receipt Date: 20090304
  Transmission Date: 20090719
  Serious: Yes (Hospitalization, Other)
  Sender: FDA-Public Use
  Company Number: 232461K09USA

PATIENT
  Age: 50 Year
  Sex: Female

DRUGS (5)
  1. REBIF [Suspect]
     Indication: MULTIPLE SCLEROSIS
     Dosage: 44 MCG,; 22 MCG,
     Dates: start: 20020401, end: 20020101
  2. REBIF [Suspect]
     Indication: MULTIPLE SCLEROSIS
     Dosage: 44 MCG,; 22 MCG,
     Dates: start: 20020101, end: 20020601
  3. REBIF [Suspect]
     Indication: MULTIPLE SCLEROSIS
     Dosage: 44 MCG,; 22 MCG,
     Dates: start: 20020801
  4. REBIF [Suspect]
     Indication: MULTIPLE SCLEROSIS
     Dosage: 44 MCG,; 22 MCG,
     Dates: start: 20030901
  5. SYNTHROID [Concomitant]

REACTIONS (12)
  - BLOOD THYROID STIMULATING HORMONE ABNORMAL [None]
  - DEHYDRATION [None]
  - FALL [None]
  - FATIGUE [None]
  - INFLUENZA LIKE ILLNESS [None]
  - INJECTION SITE PAIN [None]
  - LUNG NEOPLASM [None]
  - OSTEOPENIA [None]
  - OVARIAN CANCER [None]
  - SPINAL COMPRESSION FRACTURE [None]
  - SYNCOPE [None]
  - WHITE BLOOD CELL COUNT DECREASED [None]
